FAERS Safety Report 12707951 (Version 8)
Quarter: 2018Q1

REPORT INFORMATION
  Report Type: Report from Study
  Country: GB (occurrence: GB)
  Receive Date: 20160901
  Receipt Date: 20180214
  Transmission Date: 20180508
  Serious: Yes (Hospitalization, Other)
  Sender: FDA-Public Use
  Company Number: GB-BRISTOL-MYERS SQUIBB COMPANY-BMS-2016-070914

PATIENT
  Sex: Female

DRUGS (2)
  1. ORENCIA [Suspect]
     Active Substance: ABATACEPT
     Indication: RHEUMATOID ARTHRITIS
     Dosage: 125 MG, QWK
     Route: 058
  2. ABATACEPT [Suspect]
     Active Substance: ABATACEPT
     Indication: RHEUMATOID ARTHRITIS
     Dosage: 125 MG, QWK
     Route: 058
     Dates: start: 20160418

REACTIONS (9)
  - Pelvic fracture [Unknown]
  - Cough [Unknown]
  - Arthropathy [Unknown]
  - Fall [Unknown]
  - Infection [Unknown]
  - Memory impairment [Unknown]
  - Viral infection [Unknown]
  - Herpes zoster [Unknown]
  - Lower respiratory tract infection [Unknown]
